FAERS Safety Report 6073288-1 (Version None)
Quarter: 2009Q1

REPORT INFORMATION
  Report Type: 
  Country: None (occurrence: None)
  Receive Date: 20090211
  Receipt Date: 20090203
  Transmission Date: 20090719
  Serious: Yes (Other)
  Sender: FDA-Public Use
  Company Number: US-ASTRAZENECA-2009UW03175

PATIENT
  Age: 65 Year
  Sex: Female
  Weight: 45.4 kg

DRUGS (2)
  1. ARIMIDEX [Suspect]
     Indication: BREAST CANCER
     Route: 048
     Dates: start: 20050101
  2. ACTONEL [Concomitant]

REACTIONS (7)
  - ANXIETY [None]
  - DEPRESSION [None]
  - DRY SKIN [None]
  - EYE HAEMORRHAGE [None]
  - OSTEOPOROSIS [None]
  - SLEEP DISORDER [None]
  - VISUAL ACUITY REDUCED [None]
